FAERS Safety Report 5204252-X (Version None)
Quarter: 2007Q1

REPORT INFORMATION
  Report Type: 
  Country: None (occurrence: None)
  Receive Date: 20070110
  Receipt Date: 20060120
  Transmission Date: 20070707
  Serious: No
  Sender: FDA-Public Use
  Company Number: US-BRISTOL-MYERS SQUIBB COMPANY-13255617

PATIENT
  Age: 47 Year
  Sex: Female
  Weight: 82 kg

DRUGS (4)
  1. ABILIFY [Suspect]
     Indication: SCHIZOAFFECTIVE DISORDER
     Route: 048
  2. AMBIEN [Concomitant]
  3. INHALERS [Concomitant]
  4. THYROID TAB [Concomitant]

REACTIONS (6)
  - ARTHRALGIA [None]
  - CONSTIPATION [None]
  - HEADACHE [None]
  - MYALGIA [None]
  - NAUSEA [None]
  - WEIGHT INCREASED [None]
